FAERS Safety Report 8799809 (Version 3)
Quarter: 2012Q4

REPORT INFORMATION
  Report Type: 
  Country: US (occurrence: US)
  Receive Date: 20120919
  Receipt Date: 20121017
  Transmission Date: 20130627
  Serious: Yes (Hospitalization)
  Sender: FDA-Public Use
  Company Number: US-BIOGENIDEC-2012BI038012

PATIENT
  Age: 53 Year
  Sex: Female

DRUGS (1)
  1. TYSABRI [Suspect]
     Indication: MULTIPLE SCLEROSIS
     Route: 042
     Dates: start: 20091030, end: 20120731

REACTIONS (9)
  - Pneumonia [Recovered/Resolved]
  - Enterococcal infection [Recovered/Resolved]
  - Enterococcal bacteraemia [Recovered/Resolved]
  - Intestinal obstruction [Recovered/Resolved]
  - Pneumonia aspiration [Recovered/Resolved]
  - Vomiting [Recovered/Resolved]
  - Pleurisy [Recovered/Resolved]
  - Catheter site haematoma [Recovered/Resolved]
  - Pyrexia [Unknown]
